FAERS Safety Report 23693708 (Version 1)
Quarter: 2024Q2

REPORT INFORMATION
  Report Type: Spontaneous
  Country: US (occurrence: US)
  Receive Date: 20240401
  Receipt Date: 20240401
  Transmission Date: 20240716
  Serious: No
  Sender: FDA-Public Use
  Company Number: US-Prasco Laboratories-PRAS20240811

PATIENT
  Age: 57 Year
  Sex: Female

DRUGS (2)
  1. ESTRADIOL [Suspect]
     Active Substance: ESTRADIOL
     Indication: Menopause
     Dosage: UNKNOWN
     Route: 067
     Dates: start: 20240313, end: 20240324
  2. ESTRADIOL [Suspect]
     Active Substance: ESTRADIOL
     Indication: Vulvovaginal dryness

REACTIONS (7)
  - Genital haemorrhage [Recovered/Resolved]
  - Vulvovaginal discomfort [Recovered/Resolved]
  - Vulvovaginal erythema [Recovered/Resolved]
  - Vulvovaginal injury [Recovered/Resolved]
  - Labia enlarged [Unknown]
  - Wrong technique in product usage process [None]
  - Off label use [None]

NARRATIVE: CASE EVENT DATE: 20240301
